FAERS Safety Report 5607657-8 (Version None)
Quarter: 2008Q1

REPORT INFORMATION
  Report Type: 
  Country: None (occurrence: None)
  Receive Date: 20080125
  Receipt Date: 20080116
  Transmission Date: 20080703
  Serious: Yes (Other)
  Sender: FDA-Public Use
  Company Number: GXKR2008IT00885

PATIENT
  Age: 74 Year
  Sex: Male

DRUGS (5)
  1. CARVEDILOLO HEXAL (NGX)(CARVEDILOL) UNKNOWN [Suspect]
     Indication: TACHYCARDIA
     Dosage: ORAL
     Route: 048
     Dates: start: 20071210, end: 20071217
  2. FUROSEMIDE [Suspect]
     Indication: ESSENTIAL HYPERTENSION
     Dosage: ORAL
     Route: 048
     Dates: start: 20071210, end: 20071217
  3. AMLODIPINE BESYLATE [Concomitant]
  4. SIMVASTATIN [Concomitant]
  5. TICLOPIDINE (TICLOPIDINE) [Concomitant]

REACTIONS (6)
  - ABDOMINAL PAIN [None]
  - ASTHENIA [None]
  - DYSPNOEA [None]
  - HYPERTENSIVE CRISIS [None]
  - PALPITATIONS [None]
  - TACHYCARDIA [None]
